FAERS Safety Report 6195150-6 (Version None)
Quarter: 2009Q2

REPORT INFORMATION
  Report Type: 
  Country: None (occurrence: None)
  Receive Date: 20090519
  Receipt Date: 20090513
  Transmission Date: 20091009
  Serious: Yes (Disabling)
  Sender: FDA-Public Use
  Company Number: JP-PFIZER INC-2009213561

PATIENT

DRUGS (2)
  1. SILDENAFIL CITRATE [Suspect]
     Indication: PULMONARY HYPERTENSION
     Dosage: 60MG/DAILY
     Route: 048
     Dates: start: 20090313, end: 20090501
  2. TRACLEER [Concomitant]
     Route: 048
     Dates: start: 20090413

REACTIONS (1)
  - HEPATIC FUNCTION ABNORMAL [None]
